FAERS Safety Report 11362021 (Version 1)
Quarter: 2015Q3

REPORT INFORMATION
  Report Type: Spontaneous
  Country: US (occurrence: US)
  Receive Date: 20150810
  Receipt Date: 20150810
  Transmission Date: 20151125
  Serious: No
  Sender: FDA-Public Use
  Company Number: US-GLAXOSMITHKLINE-US2015113475

PATIENT
  Age: 62 Year
  Sex: Male

DRUGS (1)
  1. SIMPLY RIGHT CLEAR 21 MG [Suspect]
     Active Substance: NICOTINE
     Indication: SMOKING CESSATION THERAPY
     Dosage: 21 MG, UNK
     Dates: start: 20150804, end: 20150805

REACTIONS (3)
  - Cough [Not Recovered/Not Resolved]
  - Application site pain [Recovered/Resolved]
  - Pain in extremity [Recovered/Resolved]
